FAERS Safety Report 7026739-X (Version None)
Quarter: 2010Q4

REPORT INFORMATION
  Report Type: 
  Country: None (occurrence: None)
  Receive Date: 20101004
  Receipt Date: 20100923
  Transmission Date: 20110411
  Serious: Yes (Other)
  Sender: FDA-Public Use
  Company Number: CH-SOLVAY-00210005925

PATIENT
  Age: 31 Year
  Sex: Female

DRUGS (1)
  1. PROGESTERONE [Suspect]
     Indication: PROPHYLAXIS OF ABORTION
     Dosage: DAILY DOSE: 200 MILLIGRAM(S)
     Route: 048

REACTIONS (7)
  - ANISOCYTOSIS [None]
  - DRUG EXPOSURE DURING PREGNANCY [None]
  - FATIGUE [None]
  - PLATELET COUNT INCREASED [None]
  - POIKILOCYTOSIS [None]
  - SERUM FERRITIN INCREASED [None]
  - SIDEROBLASTIC ANAEMIA [None]
